FAERS Safety Report 4300168-1 (Version None)
Quarter: 2004Q1

REPORT INFORMATION
  Report Type: 
  Country: None (occurrence: None)
  Receive Date: 20040218
  Receipt Date: 20040129
  Transmission Date: 20041129
  Serious: Yes (Other)
  Sender: FDA-Public Use
  Company Number: USA040258078

PATIENT
  Age: 1 Day
  Sex: Male

DRUGS (1)
  1. STRATTERA [Suspect]
     Dates: start: 20030301

REACTIONS (5)
  - FORCEPS DELIVERY [None]
  - INTRAVENTRICULAR HAEMORRHAGE [None]
  - MATERNAL DRUGS AFFECTING FOETUS [None]
  - NEONATAL DISORDER [None]
  - PAIN [None]
